FAERS Safety Report 8074625-9 (Version None)
Quarter: 2012Q1

REPORT INFORMATION
  Report Type: 
  Country: None (occurrence: None)
  Receive Date: 20120120
  Receipt Date: 20120103
  Transmission Date: 20120608
  Serious: Yes (Death)
  Sender: FDA-Public Use
  Company Number: B0773362A

PATIENT
  Age: 51 Year
  Sex: Male

DRUGS (3)
  1. ETHANOL (FORMULATION UNKNOWN) (ALCOHOL) [Suspect]
     Indication: PRODUCT USED FOR UNKNOWN INDICATION
     Dosage: UNK / UNK / UNKNOWN
  2. LAMOTRIGINE [Suspect]
     Indication: PRODUCT USED FOR UNKNOWN INDICATION
     Dosage: UNK / UNK / UNKNOWN
  3. MORPHINE [Suspect]
     Indication: PRODUCT USED FOR UNKNOWN INDICATION
     Dosage: UNK / UNK / UNKNOWN

REACTIONS (2)
  - DRUG ABUSE [None]
  - CARDIO-RESPIRATORY ARREST [None]
